FAERS Safety Report 19168562 (Version 1)
Quarter: 2021Q2

REPORT INFORMATION
  Report Type: Spontaneous
  Country: US (occurrence: US)
  Receive Date: 20210421
  Receipt Date: 20210421
  Transmission Date: 20210717
  Serious: Yes (Death)
  Sender: FDA-Public Use
  Company Number: None

PATIENT
  Age: 63 Year
  Sex: Female
  Weight: 78.93 kg

DRUGS (13)
  1. DRAMAMINE LESS DROWSY [Concomitant]
     Active Substance: MECLIZINE HYDROCHLORIDE
  2. XGEVA [Suspect]
     Active Substance: DENOSUMAB
     Indication: RENAL CANCER
     Route: 058
     Dates: start: 20210112, end: 20210421
  3. MEGESTROL ACETATE. [Concomitant]
     Active Substance: MEGESTROL ACETATE
  4. OXYCODONE HYDROCHLORIDE. [Concomitant]
     Active Substance: OXYCODONE HYDROCHLORIDE
  5. KEYTRUDA [Concomitant]
     Active Substance: PEMBROLIZUMAB
  6. METFORMIN HCL [Concomitant]
     Active Substance: METFORMIN HYDROCHLORIDE
  7. AVASTIN [Concomitant]
     Active Substance: BEVACIZUMAB
  8. PREDNISOLONE. [Concomitant]
     Active Substance: PREDNISOLONE
  9. AVASTIN [Suspect]
     Active Substance: BEVACIZUMAB
     Indication: RENAL CANCER
     Route: 042
     Dates: start: 20210112, end: 20210421
  10. CLONAZEPAM. [Concomitant]
     Active Substance: CLONAZEPAM
  11. NORCO [Concomitant]
     Active Substance: ACETAMINOPHEN\HYDROCODONE BITARTRATE
  12. DEXAMETHASONE. [Concomitant]
     Active Substance: DEXAMETHASONE
  13. TEMSIROLIMUS. [Concomitant]
     Active Substance: TEMSIROLIMUS

REACTIONS (1)
  - Death [None]

NARRATIVE: CASE EVENT DATE: 20210421
